FAERS Safety Report 8187983-1 (Version None)
Quarter: 2012Q1

REPORT INFORMATION
  Report Type: 
  Country: None (occurrence: None)
  Receive Date: 20120306
  Receipt Date: 20120224
  Transmission Date: 20120608
  Serious: Yes (Hospitalization)
  Sender: FDA-Public Use
  Company Number: FR-PERRIGO-12FR001742

PATIENT
  Age: 64 Year
  Sex: Female

DRUGS (1)
  1. ACETAMINOPHEN [Suspect]
     Indication: POISONING DELIBERATE
     Dosage: 100 G, SINGLE
     Route: 048

REACTIONS (13)
  - HYPOTHERMIA [None]
  - COMA [None]
  - HYPOTENSION [None]
  - METABOLIC ACIDOSIS [None]
  - ARRHYTHMIA [None]
  - BRADYARRHYTHMIA [None]
  - RHABDOMYOLYSIS [None]
  - BLEEDING TIME PROLONGED [None]
  - ELECTROCARDIOGRAM QRS COMPLEX PROLONGED [None]
  - ELECTROCARDIOGRAM ST SEGMENT [None]
  - INTENTIONAL OVERDOSE [None]
  - HEPATITIS TOXIC [None]
  - ANION GAP INCREASED [None]
